FAERS Safety Report 11705946 (Version 1)
Quarter: 2015Q4

REPORT INFORMATION
  Report Type: Report from Study
  Country: GB (occurrence: GB)
  Receive Date: 20151106
  Receipt Date: 20151106
  Transmission Date: 20160304
  Serious: No
  Sender: FDA-Public Use
  Company Number: GB-JNJFOC-20151019676

PATIENT
  Sex: Male

DRUGS (1)
  1. STELARA [Suspect]
     Active Substance: USTEKINUMAB
     Indication: PSORIASIS
     Route: 058
     Dates: start: 20150109

REACTIONS (2)
  - Systemic lupus erythematosus [Unknown]
  - Skin disorder [Unknown]

NARRATIVE: CASE EVENT DATE: 20151003
